FAERS Safety Report 8385139-0 (Version None)
Quarter: 2012Q2

REPORT INFORMATION
  Report Type: 
  Country: None (occurrence: None)
  Receive Date: 20120524
  Receipt Date: 20120516
  Transmission Date: 20120825
  Serious: Yes (Hospitalization)
  Sender: FDA-Public Use
  Company Number: ES-ABBOTT-12P-144-0936267-00

PATIENT
  Age: 30 Year
  Sex: Female

DRUGS (4)
  1. CELECOXIB [Concomitant]
     Indication: RHEUMATOID ARTHRITIS
  2. TRAMADOL HYDROCHLORIDE [Concomitant]
     Indication: RHEUMATOID ARTHRITIS
  3. PREDNISONE [Concomitant]
     Indication: PRODUCT USED FOR UNKNOWN INDICATION
  4. HUMIRA [Suspect]
     Indication: RHEUMATOID ARTHRITIS
     Route: 050
     Dates: start: 20030101, end: 20050101

REACTIONS (2)
  - CROHN'S DISEASE [None]
  - DIARRHOEA [None]
